FAERS Safety Report 5974463-4 (Version None)
Quarter: 2008Q4

REPORT INFORMATION
  Report Type: 
  Country: None (occurrence: None)
  Receive Date: 20081128
  Receipt Date: 20081113
  Transmission Date: 20090506
  Serious: Yes (Other)
  Sender: FDA-Public Use
  Company Number: ENT 2008-0160

PATIENT
  Age: 70 Year
  Sex: Female

DRUGS (7)
  1. COMTAN [Suspect]
     Indication: DRUG EFFECT DECREASED
     Dosage: 400 MG (100 MG, 4 IN 1 D) ORAL
     Route: 048
     Dates: start: 20080507
  2. AMARYL [Suspect]
     Indication: DIABETES MELLITUS
     Dosage: 1 MG ORAL
     Route: 048
  3. LEVODOPA [Suspect]
  4. STARSIS [Concomitant]
  5. CARBIDOPA + LEVODOPA [Concomitant]
  6. SELEGILINE HYDROCHLORIDE [Concomitant]
  7. PRAMIPEXOLE DIHYDROCHLORIDE [Concomitant]

REACTIONS (6)
  - CONDITION AGGRAVATED [None]
  - DRUG EFFECT INCREASED [None]
  - GLYCOSYLATED HAEMOGLOBIN INCREASED [None]
  - HYPERHIDROSIS [None]
  - HYPOGLYCAEMIA [None]
  - PALPITATIONS [None]
